FAERS Safety Report 10193530 (Version 1)
Quarter: 2014Q2

REPORT INFORMATION
  Report Type: Spontaneous
  Country: US (occurrence: US)
  Receive Date: 20140524
  Receipt Date: 20140524
  Transmission Date: 20141212
  Serious: No
  Sender: FDA-Public Use
  Company Number: US-SA-2013SA133624

PATIENT
  Age: 78 Year
  Sex: Male

DRUGS (3)
  1. LANTUS [Suspect]
     Indication: DIABETES MELLITUS
     Dosage: DOSE:25 UNIT(S)
     Route: 058
  2. SIMVASTATIN [Suspect]
     Route: 065
  3. METFORMIN [Concomitant]

REACTIONS (6)
  - Blood cholesterol increased [Not Recovered/Not Resolved]
  - Asthenia [Recovering/Resolving]
  - Disorientation [Recovering/Resolving]
  - Gait disturbance [Recovering/Resolving]
  - Balance disorder [Recovering/Resolving]
  - Fall [Recovering/Resolving]
